FAERS Safety Report 8974186 (Version 1)
Quarter: 2012Q4

REPORT INFORMATION
  Report Type: Spontaneous
  Country: AU (occurrence: None)
  Receive Date: 20121212
  Receipt Date: 20121212
  Transmission Date: 20130627
  Serious: Yes (Death, Hospitalization)
  Sender: FDA-Public Use
  Company Number: 2012-21683

PATIENT
  Age: 45 Year
  Sex: Female

DRUGS (1)
  1. PARACETAMOL (UNKNOWN) (PARACETAMOL) UNK, UNKUNK [Suspect]
     Indication: PAIN MANAGEMENT
     Route: 048

REACTIONS (9)
  - Multi-organ failure [None]
  - Acute hepatic failure [None]
  - Toxicity to various agents [None]
  - Accidental poisoning [None]
  - Abnormal behaviour [None]
  - Confusional state [None]
  - Somnolence [None]
  - Renal failure [None]
  - Metabolic acidosis [None]
